FAERS Safety Report 23650526 (Version 1)
Quarter: 2024Q1

REPORT INFORMATION
  Report Type: Spontaneous
  Country: US (occurrence: None)
  Receive Date: 20240320
  Receipt Date: 20240320
  Transmission Date: 20240409
  Serious: No
  Sender: FDA-Public Use
  Company Number: US-ROCHE-3457264

PATIENT
  Age: 87 Year
  Sex: Male
  Weight: 98.972 kg

DRUGS (3)
  1. VABYSMO [Suspect]
     Active Substance: FARICIMAB\FARICIMAB-SVOA
     Indication: Neovascular age-related macular degeneration
     Dosage: BILATERALLY??ON 7/NOVEMBER/2023, SHE RECEIVED MOST RECENT INJECTIONS OF VABYSMO 6 MG IN BOTH HER LEF
     Route: 050
  2. OCUVITE PRESERVISION [Concomitant]
     Indication: Neovascular age-related macular degeneration
     Route: 048
  3. ALLOPURINOL [Concomitant]
     Active Substance: ALLOPURINOL
     Route: 048

REACTIONS (1)
  - Uveitis [Not Recovered/Not Resolved]

NARRATIVE: CASE EVENT DATE: 20231110
